FAERS Safety Report 4837172-0 (Version None)
Quarter: 2005Q4

REPORT INFORMATION
  Report Type: 
  Country: None (occurrence: None)
  Receive Date: 20051122
  Receipt Date: 20051109
  Transmission Date: 20060501
  Serious: Yes (Death)
  Sender: FDA-Public Use
  Company Number: 05-06-1083

PATIENT
  Age: 50 Year
  Sex: Female

DRUGS (5)
  1. CLOZAPINE [Suspect]
     Indication: SCHIZOPHRENIA
     Dosage: 150-200MG QD, ORAL
     Route: 048
     Dates: start: 20021201, end: 20050531
  2. VALPROATE SODIUM [Concomitant]
  3. CLONAZEPAM [Concomitant]
  4. NIFEDIPINE [Concomitant]
  5. BUPROPION HCL [Concomitant]

REACTIONS (1)
  - HYPERTENSIVE HEART DISEASE [None]
